FAERS Safety Report 10364581 (Version 4)
Quarter: 2014Q4

REPORT INFORMATION
  Report Type: Spontaneous
  Country: US (occurrence: None)
  Receive Date: 20140801
  Receipt Date: 20141205
  Transmission Date: 20150528
  Serious: Yes (Disabling, Other)
  Sender: FDA-Public Use
  Company Number: 2014-20072

PATIENT
  Age: 82 Year
  Sex: Female
  Weight: 65.8 kg

DRUGS (9)
  1. PRESERVISION 3 (ASCORBI ACID, OMEGA-3 FATTY ACIDS, TOCOPHEROL, XANTOFYL, ZEAXANTHIN, ZINC) [Concomitant]
  2. NIACIN (NICOTIIC ACID) [Concomitant]
  3. POTASSIUM (POTASSIUM) [Concomitant]
     Active Substance: POTASSIUM
  4. EYLEA [Suspect]
     Active Substance: AFLIBERCEPT
     Indication: AGE-RELATED MACULAR DEGENERATION
     Dosage: OS WITH DEXAMETHASONE
     Dates: start: 20130806
  5. EYLEA [Suspect]
     Active Substance: AFLIBERCEPT
     Indication: NEOVASCULAR AGE-RELATED MACULAR DEGENERATION
     Dosage: OS WITH DEXAMETHASONE
     Dates: start: 20130806
  6. METOPROLOL (METOPROLOL) [Concomitant]
     Active Substance: METOPROLOL
  7. MULTIVITAMIN (ASCORBIC ACID, CALCIUM PANTOTHENATE, ERGOCALCIFEROL, NICOTINAMIDE, PYRIDOXINE HYDROCHLORIDE, RETINOL, RIBOFLAVIN, THIAMINE HYDROCHLORIDE) [Concomitant]
  8. CAPTOPRIL (CAPTOPRIL) [Concomitant]
  9. DEXAMETHASONE. [Suspect]
     Active Substance: DEXAMETHASONE
     Indication: AGE-RELATED MACULAR DEGENERATION
     Dates: start: 20130910, end: 20130910

REACTIONS (9)
  - Cataract [None]
  - Lens disorder [None]
  - Blindness transient [None]
  - Ophthalmic fluid drainage [None]
  - Eye disorder [None]
  - Incorrect dose administered [None]
  - Vision blurred [None]
  - Intraocular pressure increased [None]
  - Inappropriate schedule of drug administration [None]

NARRATIVE: CASE EVENT DATE: 20140729
